FAERS Safety Report 21978075 (Version 3)
Quarter: 2024Q3

REPORT INFORMATION
  Report Type: Report from Study
  Country: PH (occurrence: PH)
  Receive Date: 20230210
  Receipt Date: 20240815
  Transmission Date: 20241017
  Serious: Yes (Disabling)
  Sender: OTSUKA
  Company Number: PH-OTSUKA-2023_003324

PATIENT
  Age: 31 Year
  Sex: Male

DRUGS (1)
  1. ARIPIPRAZOLE [Suspect]
     Active Substance: ARIPIPRAZOLE
     Indication: Mental disorder
     Dosage: 300 MG
     Route: 065
     Dates: start: 20220525, end: 202301

REACTIONS (2)
  - Apathy [Unknown]
  - Product use in unapproved indication [Unknown]

NARRATIVE: CASE EVENT DATE: 20220525
